FAERS Safety Report 14863409 (Version 1)
Quarter: 2018Q2

REPORT INFORMATION
  Report Type: Spontaneous
  Country: US (occurrence: US)
  Receive Date: 20180508
  Receipt Date: 20180508
  Transmission Date: 20180711
  Serious: No
  Sender: FDA-Public Use
  Company Number: US-ALKERMES INC.-ALK-2017-002778

PATIENT
  Age: 5 Decade
  Sex: Female

DRUGS (1)
  1. VIVITROL [Suspect]
     Active Substance: NALTREXONE
     Indication: ALCOHOLISM
     Dosage: 380 MG, QMO
     Route: 030

REACTIONS (7)
  - Feeling abnormal [Unknown]
  - Mental disorder [Unknown]
  - Depression [Unknown]
  - Alcoholism [Unknown]
  - Arthralgia [Unknown]
  - Headache [Unknown]
  - Anxiety [Unknown]
